FAERS Safety Report 8852453 (Version 8)
Quarter: 2013Q2

REPORT INFORMATION
  Report Type: Spontaneous
  Country: JP (occurrence: JP)
  Receive Date: 20121022
  Receipt Date: 20130625
  Transmission Date: 20140414
  Serious: Yes (Death, Life-Threatening, Hospitalization, Other)
  Sender: FDA-Public Use
  Company Number: JP-PFIZER INC-2012260886

PATIENT
  Age: 68 Year
  Sex: Male
  Weight: 44.5 kg

DRUGS (19)
  1. LYRICA [Suspect]
     Indication: PAIN IN EXTREMITY
     Dosage: 25 MG, 1X/DAY
     Route: 048
     Dates: start: 20120524, end: 20120626
  2. LYRICA [Suspect]
     Dosage: 25 MG, 1X/DAY
     Route: 048
     Dates: start: 20120903, end: 20120927
  3. LYRICA [Suspect]
     Dosage: 75 MG, 1X/DAY
     Route: 048
     Dates: start: 20120928, end: 20121016
  4. NITRODERM TTS [Concomitant]
     Dosage: 25 MG, 1X/DAY
     Route: 062
     Dates: end: 20121016
  5. LENDORMIN D [Concomitant]
     Dosage: 0.25 MG, 1X/DAY
     Route: 048
     Dates: end: 20120626
  6. CINACALCET HYDROCHLORIDE [Concomitant]
     Dosage: 25 MG, 1X/DAY
     Route: 048
     Dates: start: 20101116, end: 20120626
  7. PURSENNID [Concomitant]
     Dosage: 12 MG, 1X/DAY
     Route: 048
     Dates: start: 20110108, end: 20120626
  8. NORVASC [Concomitant]
     Dosage: 5 MG, 2X/DAY
     Route: 048
     Dates: end: 20120626
  9. CALCIUM CARBONATE [Concomitant]
     Dosage: 1000 MG, 3X/DAY
     Route: 048
     Dates: end: 20120626
  10. MARZULENE S [Concomitant]
     Dosage: 0.67 G, 3X/DAY
     Route: 048
     Dates: end: 20120626
  11. OLMETEC [Concomitant]
     Dosage: 20 MG, 2X/DAY
     Route: 048
     Dates: start: 20100320, end: 20120626
  12. RABEPRAZOLE SODIUM [Concomitant]
     Dosage: 10 MG, 1X/DAY
     Route: 048
     Dates: start: 20110903, end: 20120906
  13. PANALDINE [Concomitant]
     Dosage: 100 MG, 2X/DAY
     Route: 048
     Dates: end: 20120717
  14. SIGMART [Concomitant]
     Dosage: 5 MG, 3X/DAY
     Route: 048
     Dates: end: 20121016
  15. ARTIST [Concomitant]
     Dosage: 10 MG, 1X/DAY
     Route: 048
     Dates: end: 20121016
  16. BAYASPIRIN [Concomitant]
     Dosage: 100 MG, 1X/DAY
     Route: 048
     Dates: end: 20121016
  17. PLAVIX [Concomitant]
     Dosage: 75 MG, 1X/DAY
     Route: 048
     Dates: start: 20120718, end: 20120728
  18. OPALMON [Concomitant]
     Dosage: 5 UG, 3X/DAY
     Route: 048
     Dates: start: 20120105, end: 20120423
  19. ZOSYN [Concomitant]
     Indication: PNEUMONIA BACTERIAL
     Dosage: 4.5 G/DAY
     Route: 041
     Dates: start: 20120526, end: 20120604

REACTIONS (4)
  - Interstitial lung disease [Fatal]
  - Respiratory failure [Fatal]
  - Interstitial lung disease [Recovered/Resolved]
  - Gastrointestinal haemorrhage [Unknown]
